FAERS Safety Report 16629193 (Version 1)
Quarter: 2019Q3

REPORT INFORMATION
  Report Type: Spontaneous
  Country: US (occurrence: US)
  Receive Date: 20190725
  Receipt Date: 20190725
  Transmission Date: 20191004
  Serious: Yes (Other)
  Sender: FDA-Public Use
  Company Number: US-STRIDES ARCOLAB LIMITED-2019SP000006

PATIENT
  Age: 62 Year
  Sex: Male

DRUGS (29)
  1. DOXEPIN [Suspect]
     Active Substance: DOXEPIN
     Indication: DERMATITIS ATOPIC
     Dosage: UNK
     Route: 061
  2. ECONAZOLE. [Suspect]
     Active Substance: ECONAZOLE NITRATE
     Indication: DERMATITIS ATOPIC
     Dosage: UNK
     Route: 061
  3. MONTELUKAST [Concomitant]
     Active Substance: MONTELUKAST SODIUM
     Indication: ASTHMA
     Dosage: UNK
     Route: 065
  4. BUPROPION. [Concomitant]
     Active Substance: BUPROPION
     Indication: PRODUCT USED FOR UNKNOWN INDICATION
     Dosage: UNK
     Route: 065
  5. CETIRIZINE [Suspect]
     Active Substance: CETIRIZINE HYDROCHLORIDE
     Indication: DERMATITIS ATOPIC
     Dosage: UNK
  6. CEFALEXIN [Suspect]
     Active Substance: CEPHALEXIN
     Indication: DERMATITIS ATOPIC
     Dosage: UNK
  7. GABAPENTIN. [Suspect]
     Active Substance: GABAPENTIN
     Indication: DERMATITIS ATOPIC
     Dosage: UNK
     Route: 065
  8. NYSTATIN. [Suspect]
     Active Substance: NYSTATIN
     Indication: DERMATITIS ATOPIC
     Dosage: UNK
     Route: 061
  9. TRIAMCINOLONE [Suspect]
     Active Substance: TRIAMCINOLONE
     Dosage: UNK
     Route: 030
  10. FLUCONAZOLE. [Suspect]
     Active Substance: FLUCONAZOLE
     Indication: DERMATITIS ATOPIC
     Dosage: UNK
  11. BUDESONIDE W/FORMOTEROL [Suspect]
     Active Substance: BUDESONIDE\FORMOTEROL
     Indication: ASTHMA
  12. MYCOPHENOLATE MOFETIL. [Suspect]
     Active Substance: MYCOPHENOLATE MOFETIL
     Indication: DERMATITIS ATOPIC
     Dosage: 2 G/DAY
     Route: 065
  13. DESONIDE. [Suspect]
     Active Substance: DESONIDE
     Indication: DERMATITIS ATOPIC
     Dosage: UNK
     Route: 061
  14. CAPSAICIN. [Suspect]
     Active Substance: CAPSAICIN
     Indication: DERMATITIS ATOPIC
     Dosage: UNK
     Route: 061
  15. RIFAMPIN. [Suspect]
     Active Substance: RIFAMPIN
     Indication: DERMATITIS ATOPIC
     Dosage: UNK
  16. MYCOPHENOLATE MOFETIL. [Suspect]
     Active Substance: MYCOPHENOLATE MOFETIL
     Dosage: 3 G/DAY
     Route: 065
  17. TACROLIMUS. [Concomitant]
     Active Substance: TACROLIMUS
     Indication: DERMATITIS ATOPIC
     Dosage: UNK
     Route: 061
  18. LIDOCAINE. [Suspect]
     Active Substance: LIDOCAINE
     Dosage: UNK, TWO TIMES PERMONTH
     Route: 061
  19. FLUOCINONIDE. [Suspect]
     Active Substance: FLUOCINONIDE
     Indication: DERMATITIS ATOPIC
     Dosage: UNK
     Route: 065
  20. MICONAZOLE. [Suspect]
     Active Substance: MICONAZOLE
     Indication: DERMATITIS ATOPIC
     Dosage: UNK
     Route: 061
  21. ALBUTEROL                          /00139501/ [Concomitant]
     Active Substance: ALBUTEROL
     Indication: ASTHMA
     Dosage: UNK
     Route: 065
  22. TRIAMCINOLONE [Suspect]
     Active Substance: TRIAMCINOLONE
     Indication: DERMATITIS ATOPIC
     Dosage: UNK
     Route: 061
  23. CLOTRIMAZOLE. [Suspect]
     Active Substance: CLOTRIMAZOLE
     Indication: DERMATITIS ATOPIC
     Dosage: UNK
     Route: 061
  24. METHYLPHENIDATE. [Concomitant]
     Active Substance: METHYLPHENIDATE
     Indication: PRODUCT USED FOR UNKNOWN INDICATION
     Dosage: UNK
     Route: 065
  25. HYDROCORTISONE. [Suspect]
     Active Substance: HYDROCORTISONE
     Indication: DERMATITIS ATOPIC
     Dosage: UNK, CREAM
     Route: 061
  26. LIDOCAINE. [Suspect]
     Active Substance: LIDOCAINE
     Indication: DERMATITIS ATOPIC
     Dosage: UNK, OINTMENT
     Route: 061
  27. HYDROXYZINE [Suspect]
     Active Substance: HYDROXYZINE HYDROCHLORIDE
     Indication: DERMATITIS ATOPIC
     Dosage: UNK
  28. BUDESONIDE W/FORMOTEROL [Suspect]
     Active Substance: BUDESONIDE\FORMOTEROL
     Indication: DERMATITIS ATOPIC
     Dosage: UNK
     Route: 030
  29. BUDESONIDE. [Concomitant]
     Active Substance: BUDESONIDE
     Indication: ASTHMA
     Dosage: UNK
     Route: 065

REACTIONS (3)
  - Off label use [Unknown]
  - Upper respiratory tract infection [Unknown]
  - Therapy partial responder [Unknown]
